FAERS Safety Report 14717831 (Version 1)
Quarter: 2018Q2

REPORT INFORMATION
  Report Type: Spontaneous
  Country: US (occurrence: US)
  Receive Date: 20180404
  Receipt Date: 20180404
  Transmission Date: 20180711
  Serious: No
  Sender: FDA-Public Use
  Company Number: US-SA-2018SA030049

PATIENT
  Age: 21 Year
  Sex: Female

DRUGS (1)
  1. DUPIXENT [Suspect]
     Active Substance: DUPILUMAB
     Indication: DERMATITIS ATOPIC
     Route: 058
     Dates: start: 20171116

REACTIONS (5)
  - Injection site rash [Unknown]
  - Injection site warmth [Unknown]
  - Rash [Unknown]
  - Injection site erythema [Unknown]
  - Alopecia [Unknown]

NARRATIVE: CASE EVENT DATE: 20180306
